FAERS Safety Report 4420071-6 (Version None)
Quarter: 2004Q3

REPORT INFORMATION
  Report Type: 
  Country: None (occurrence: None)
  Receive Date: 20040804
  Receipt Date: 20040709
  Transmission Date: 20050211
  Serious: Yes (Hospitalization)
  Sender: FDA-Public Use
  Company Number: EWC040739922

PATIENT
  Age: 34 Year
  Sex: Female

DRUGS (3)
  1. OLANZAPINE [Suspect]
     Dosage: 20 MG/1 DAY
  2. LEVOPROMAZIN [Concomitant]
  3. KEMADRIN [Concomitant]

REACTIONS (4)
  - BRAIN OEDEMA [None]
  - HYPONATRAEMIA [None]
  - POLYDIPSIA [None]
  - WATER INTOXICATION [None]
